FAERS Safety Report 6329953-1 (Version None)
Quarter: 2009Q3

REPORT INFORMATION
  Report Type: 
  Country: None (occurrence: None)
  Receive Date: 20090826
  Receipt Date: 20090817
  Transmission Date: 20100115
  Serious: Yes (Other)
  Sender: FDA-Public Use
  Company Number: TW-GENENTECH-288912

PATIENT
  Age: 31 Year
  Sex: Female

DRUGS (4)
  1. AVASTIN [Suspect]
     Indication: COLORECTAL CANCER METASTATIC
     Dosage: 5 MG/KG, Q2W
     Route: 042
     Dates: start: 20090701
  2. IRINOTECAN HCL [Concomitant]
     Indication: DRUG USE FOR UNKNOWN INDICATION
     Dosage: UNK
  3. LEUCOVORIN CALCIUM [Concomitant]
     Indication: DRUG USE FOR UNKNOWN INDICATION
     Dosage: UNK
  4. FLUOROURACIL [Concomitant]
     Indication: DRUG USE FOR UNKNOWN INDICATION
     Dosage: UNK

REACTIONS (1)
  - EJECTION FRACTION DECREASED [None]
